FAERS Safety Report 7785527-7 (Version None)
Quarter: 2011Q3

REPORT INFORMATION
  Report Type: 
  Country: None (occurrence: None)
  Receive Date: 20110929
  Receipt Date: 20110919
  Transmission Date: 20111222
  Serious: Yes (Other)
  Sender: FDA-Public Use
  Company Number: US-JNJFOC-20110802162

PATIENT
  Sex: Female

DRUGS (9)
  1. PERCOCET [Concomitant]
     Route: 065
  2. REMICADE [Suspect]
     Route: 042
     Dates: start: 20101201, end: 20110201
  3. METRONIDAZOLE [Concomitant]
     Indication: CROHN'S DISEASE
     Dosage: 250-500 MG THREE TIMES A DAY
     Route: 065
  4. ANTIDEPRESSANT [Concomitant]
     Route: 065
  5. KLONOPIN [Concomitant]
     Route: 065
  6. PREDNISONE [Concomitant]
     Indication: CROHN'S DISEASE
     Route: 065
  7. IMURAN [Concomitant]
     Indication: CROHN'S DISEASE
     Route: 065
     Dates: start: 20110201, end: 20110301
  8. PROMETHAZINE [Concomitant]
     Route: 065
  9. REMICADE [Suspect]
     Indication: CROHN'S DISEASE
     Route: 042
     Dates: start: 20110301, end: 20110509

REACTIONS (2)
  - ANAL CANCER [None]
  - ANAL FISTULA [None]
